FAERS Safety Report 14879175 (Version 1)
Quarter: 2018Q2

REPORT INFORMATION
  Report Type: Report from Study
  Country: NL (occurrence: NL)
  Receive Date: 20180511
  Receipt Date: 20180511
  Transmission Date: 20180711
  Serious: Yes (Other)
  Sender: FDA-Public Use
  Company Number: NL-AMGEN-NLDSL2018063582

PATIENT
  Age: 58 Year
  Sex: Female

DRUGS (1)
  1. NEULASTA [Suspect]
     Active Substance: PEGFILGRASTIM
     Indication: NEUTROPENIA
     Dosage: 0.6 ML, Q2WK
     Route: 058

REACTIONS (3)
  - Myalgia [Recovered/Resolved]
  - Bone pain [Recovered/Resolved]
  - Diplegia [Recovered/Resolved]

NARRATIVE: CASE EVENT DATE: 20180427
